FAERS Safety Report 18632073 (Version 2)
Quarter: 2021Q1

REPORT INFORMATION
  Report Type: Spontaneous
  Country: US (occurrence: US)
  Receive Date: 20201217
  Receipt Date: 20210120
  Transmission Date: 20210419
  Serious: No
  Sender: FDA-Public Use
  Company Number: US-009507513-2012USA006490

PATIENT
  Sex: Female
  Weight: 78.47 kg

DRUGS (2)
  1. NEXPLANON [Suspect]
     Active Substance: ETONOGESTREL
     Indication: CONTRACEPTION
     Dosage: DEVICE
     Route: 059
     Dates: start: 20210106
  2. NEXPLANON [Suspect]
     Active Substance: ETONOGESTREL
     Indication: CONTRACEPTION
     Dosage: 68 MG ONCE
     Route: 059
     Dates: start: 20200326, end: 20200720

REACTIONS (1)
  - Weight abnormal [Recovered/Resolved]

NARRATIVE: CASE EVENT DATE: 2020
